FAERS Safety Report 4315933-4 (Version None)
Quarter: 2004Q1

REPORT INFORMATION
  Report Type: 
  Country: None (occurrence: None)
  Receive Date: 20040302
  Receipt Date: 20031216
  Transmission Date: 20041129
  Serious: Yes (Hospitalization)
  Sender: FDA-Public Use
  Company Number: US061227

PATIENT
  Age: 60 Year
  Sex: Male

DRUGS (3)
  1. ENBREL [Suspect]
     Indication: RHEUMATOID ARTHRITIS
     Dosage: 25 MG, TWICE WEEKLY, SC
     Route: 058
     Dates: start: 20030320, end: 20031113
  2. METHOTREXATE [Suspect]
     Dosage: WEEKLY, PO
     Route: 048
     Dates: start: 20030129, end: 20031113
  3. PREDNISONE [Suspect]
     Dosage: 10 MG, DAILY, PO
     Route: 048
     Dates: start: 20030101

REACTIONS (1)
  - PNEUMONITIS [None]
